FAERS Safety Report 7426645-2 (Version None)
Quarter: 2011Q2

REPORT INFORMATION
  Report Type: 
  Country: None (occurrence: None)
  Receive Date: 20110420
  Receipt Date: 20110415
  Transmission Date: 20111010
  Serious: Yes (Hospitalization, Other)
  Sender: FDA-Public Use
  Company Number: BR-ABBOTT-11P-020-0719613-00

PATIENT
  Sex: Female
  Weight: 42 kg

DRUGS (5)
  1. BALCIUM VITAMIN B3 [Concomitant]
     Indication: RHEUMATOID ARTHRITIS
     Dosage: 200MG 600UI, 2 PER DAY
     Route: 048
  2. HUMIRA [Suspect]
     Indication: RHEUMATOID ARTHRITIS
     Route: 058
     Dates: start: 20100801, end: 20101001
  3. FOLIC ACID [Concomitant]
     Indication: RHEUMATOID ARTHRITIS
     Route: 048
  4. PREDNISONE TAB [Concomitant]
     Indication: RHEUMATOID ARTHRITIS
     Route: 048
  5. IBUPROFEN [Concomitant]
     Indication: RHEUMATOID ARTHRITIS
     Dosage: 2 PER WEEK
     Route: 048

REACTIONS (4)
  - JOINT RANGE OF MOTION DECREASED [None]
  - PAIN [None]
  - JOINT DISLOCATION [None]
  - NUCLEAR MAGNETIC RESONANCE IMAGING ABNORMAL [None]
